FAERS Safety Report 26046342 (Version 1)
Quarter: 2025Q4

REPORT INFORMATION
  Report Type: Spontaneous
  Country: US (occurrence: None)
  Receive Date: 20251113
  Receipt Date: 20251113
  Transmission Date: 20260117
  Serious: No
  Sender: FDA-CTU
  Company Number: None

PATIENT
  Age: 26 Year
  Sex: Female

DRUGS (1)
  1. ZURZUVAE [Suspect]
     Active Substance: ZURANOLONE
     Indication: Perinatal depression
     Dosage: FREQUENCY : DAILY;?
     Route: 048
     Dates: start: 20251030, end: 20251104

REACTIONS (5)
  - Somnolence [None]
  - Headache [None]
  - Eye pain [None]
  - Pain in extremity [None]
  - Intentional product use issue [None]

NARRATIVE: CASE EVENT DATE: 20251105
